FAERS Safety Report 10279876 (Version 3)
Quarter: 2014Q3

REPORT INFORMATION
  Report Type: Spontaneous
  Country: GB (occurrence: GB)
  Receive Date: 20140707
  Receipt Date: 20140819
  Transmission Date: 20150326
  Serious: Yes (Other)
  Sender: FDA-Public Use
  Company Number: PHFR2014GB004723

PATIENT
  Age: 54 Year
  Sex: Male

DRUGS (2)
  1. CLOZARIL [Suspect]
     Active Substance: CLOZAPINE
     Indication: SCHIZOPHRENIA
     Dosage: UNK
     Route: 048
     Dates: start: 20140606
  2. SODIUM VALPROATE [Concomitant]
     Active Substance: VALPROATE SODIUM
     Indication: MANIA
     Dosage: 750 MG, DAILY
     Route: 048

REACTIONS (5)
  - Platelet count increased [Not Recovered/Not Resolved]
  - Differential white blood cell count abnormal [Recovered/Resolved]
  - Bipolar I disorder [Recovered/Resolved]
  - Neutrophil count increased [Recovered/Resolved]
  - White blood cell count increased [Recovered/Resolved]

NARRATIVE: CASE EVENT DATE: 20140703
